FAERS Safety Report 10176323 (Version 2)
Quarter: 2014Q3

REPORT INFORMATION
  Report Type: Spontaneous
  Country: JP (occurrence: JP)
  Receive Date: 20140516
  Receipt Date: 20140701
  Transmission Date: 20150326
  Serious: Yes (Hospitalization)
  Sender: FDA-Public Use
  Company Number: JP-EISAI INC-E3810-07096-SPO-JP

PATIENT
  Age: 69 Year
  Sex: Female

DRUGS (6)
  1. AMOXICILLIN HYDRATE [Suspect]
     Active Substance: AMOXICILLIN
     Indication: HELICOBACTER GASTRITIS
     Route: 048
     Dates: start: 20140415, end: 20140421
  2. BIOFERMIN R [Concomitant]
     Active Substance: BACILLUS SUBTILIS\LACTOBACILLUS ACIDOPHILUS\STREPTOCOCCUS FAECAIS
     Indication: PRODUCT USED FOR UNKNOWN INDICATION
     Route: 048
     Dates: start: 20140415, end: 20140421
  3. RABECURE [Suspect]
     Active Substance: RABEPRAZOLE SODIUM
     Indication: HELICOBACTER GASTRITIS
     Route: 048
     Dates: start: 20140415, end: 20140421
  4. CLARITHROMYCIN. [Suspect]
     Active Substance: CLARITHROMYCIN
     Indication: HELICOBACTER GASTRITIS
     Route: 048
     Dates: start: 20140415, end: 20140421
  5. CRESTOR [Concomitant]
     Active Substance: ROSUVASTATIN CALCIUM
     Indication: DYSLIPIDAEMIA
     Dosage: UNKNOWN
     Route: 048
  6. SEIBULE [Concomitant]
     Active Substance: MIGLITOL
     Indication: DIABETES MELLITUS
     Dosage: UNKNOWN
     Route: 048

REACTIONS (1)
  - Haematochezia [Recovered/Resolved]

NARRATIVE: CASE EVENT DATE: 20140424
